FAERS Safety Report 7130425-5 (Version None)
Quarter: 2011Q1

REPORT INFORMATION
  Report Type: 
  Country: None (occurrence: None)
  Receive Date: 20101201
  Receipt Date: 20101122
  Transmission Date: 20110831
  Serious: Yes (Hospitalization)
  Sender: FDA-Public Use
  Company Number: FR-ASTRAZENECA-2010SE56115

PATIENT
  Age: 31726 Day
  Sex: Female

DRUGS (5)
  1. CANDESARTAN CILEXETIL AND HYDROCHLOROTHIAZIDE [Suspect]
     Dosage: 8/12.5MG
     Route: 048
     Dates: start: 20100401, end: 20100722
  2. DILTIAZEM HCL [Suspect]
     Route: 048
     Dates: end: 20100505
  3. DILTIAZEM HCL [Suspect]
     Route: 048
  4. VASTAREL [Concomitant]
     Route: 048
     Dates: start: 20100401, end: 20100722
  5. OGASTRO [Concomitant]
     Route: 048

REACTIONS (5)
  - FALL [None]
  - HYPOKALAEMIA [None]
  - ATRIOVENTRICULAR BLOCK [None]
  - ORTHOSTATIC HYPOTENSION [None]
  - HYPONATRAEMIA [None]
